FAERS Safety Report 8958697 (Version 1)
Quarter: 2012Q4

REPORT INFORMATION
  Report Type: Spontaneous
  Country: US (occurrence: None)
  Receive Date: 20121206
  Receipt Date: 20121206
  Transmission Date: 20130627
  Serious: Yes (Other)
  Sender: FDA-Public Use
  Company Number: None

PATIENT
  Age: 61 Year
  Sex: Male
  Weight: 88.45 kg

DRUGS (1)
  1. PEROXICARE [Suspect]
     Dates: start: 20121001, end: 20121028

REACTIONS (7)
  - Tongue dry [None]
  - Swollen tongue [None]
  - Glossodynia [None]
  - Oral discomfort [None]
  - Lip exfoliation [None]
  - Chapped lips [None]
  - Economic problem [None]
